FAERS Safety Report 4698727-X (Version None)
Quarter: 2005Q2

REPORT INFORMATION
  Report Type: 
  Country: None (occurrence: None)
  Receive Date: 20050622
  Receipt Date: 20050609
  Transmission Date: 20051028
  Serious: Yes (Disabling)
  Sender: FDA-Public Use
  Company Number: 215030

PATIENT
  Age: 63 Year
  Sex: Male

DRUGS (11)
  1. AVASTIN [Suspect]
     Indication: LUNG NEOPLASM MALIGNANT
     Dosage: 1200 MG, INTRAVENOUS
     Route: 042
     Dates: start: 20050519
  2. GEMZAR [Concomitant]
  3. COUMADIN [Concomitant]
  4. DIGOXIN [Concomitant]
  5. FOLIC ACID [Concomitant]
  6. MS CONTIN [Concomitant]
  7. CELEBREX [Concomitant]
  8. LASIX [Concomitant]
  9. ZOLOFT [Concomitant]
  10. VICODIN (HYDROCODONE BITARTRATE, ACETAMINOPHEN) [Concomitant]
  11. MEGACE [Concomitant]

REACTIONS (1)
  - HYPOACUSIS [None]
